FAERS Safety Report 5694575-2 (Version None)
Quarter: 2008Q2

REPORT INFORMATION
  Report Type: 
  Country: None (occurrence: None)
  Receive Date: 20080404
  Receipt Date: 20080325
  Transmission Date: 20081010
  Serious: Yes (Death)
  Sender: FDA-Public Use
  Company Number: US-ROCHE-555076

PATIENT
  Sex: Female
  Weight: 60.8 kg

DRUGS (13)
  1. KLONOPIN [Suspect]
     Indication: DRUG USE FOR UNKNOWN INDICATION
     Route: 048
     Dates: end: 20070510
  2. ARAVA [Suspect]
     Indication: RHEUMATOID ARTHRITIS
     Route: 065
     Dates: end: 20070401
  3. OPANA ER [Suspect]
     Route: 048
     Dates: start: 20070407
  4. OPANA ER [Suspect]
     Dosage: 40 MG IN MORNING AND 20 MG IN EVENING.
     Route: 048
     Dates: start: 20070509, end: 20070510
  5. OPANA [Suspect]
     Indication: BREAKTHROUGH PAIN
     Dosage: FREQUENCY: EVERY 12 HOURS
     Route: 048
     Dates: start: 20070407, end: 20070510
  6. DURAGESIC-100 [Suspect]
     Dosage: DOSE: 100 MCG PATCH EVERY THREE DAYS
     Route: 065
     Dates: start: 20070401, end: 20070510
  7. VICODIN ES [Suspect]
     Route: 048
     Dates: end: 20070510
  8. VICODIN ES [Suspect]
     Route: 048
     Dates: end: 20070510
  9. AMITRIPTYLINE HCL [Suspect]
     Indication: DRUG USE FOR UNKNOWN INDICATION
     Dosage: 300 MG, 1 TABLET EVERY NIGHT
     Route: 048
     Dates: end: 20070510
  10. ZOLOFT [Suspect]
     Indication: DRUG USE FOR UNKNOWN INDICATION
     Route: 048
     Dates: end: 20070510
  11. PROVIGIL [Suspect]
     Indication: DRUG USE FOR UNKNOWN INDICATION
     Route: 065
     Dates: end: 20070510
  12. LEVOXYL [Suspect]
     Indication: DRUG USE FOR UNKNOWN INDICATION
     Route: 048
     Dates: end: 20070510
  13. LUNESTA [Suspect]
     Indication: DRUG USE FOR UNKNOWN INDICATION
     Dosage: 3MG, 1 TABLET EVERY NIGHT
     Route: 048
     Dates: end: 20070510

REACTIONS (1)
  - DRUG TOXICITY [None]
